FAERS Safety Report 8103503-1 (Version None)
Quarter: 2012Q1

REPORT INFORMATION
  Report Type: 
  Country: None (occurrence: None)
  Receive Date: 20120127
  Receipt Date: 20120116
  Transmission Date: 20120608
  Serious: Yes (Death)
  Sender: FDA-Public Use
  Company Number: 2012POI057300013

PATIENT
  Age: 55 Year
  Sex: Female

DRUGS (5)
  1. VENLAFAXINE HCL EXTENDED-RELEASE [Suspect]
     Dosage: PER ORAL
     Route: 048
     Dates: end: 20100101
  2. LORAZEPAM [Suspect]
     Dosage: PER ORAL
     Route: 048
     Dates: end: 20100101
  3. AMITRIPTYLINE HCL [Suspect]
     Dosage: PER ORAL
     Route: 048
     Dates: end: 20100101
  4. ZOLPIDEM [Suspect]
     Dosage: PER ORAL
     Route: 048
     Dates: end: 20100101
  5. ETHANOL [Suspect]
     Dosage: PER ORAL
     Route: 048
     Dates: end: 20100101

REACTIONS (1)
  - DEATH [None]
